FAERS Safety Report 12657173 (Version 1)
Quarter: 2016Q3

REPORT INFORMATION
  Report Type: Spontaneous
  Country: US (occurrence: US)
  Receive Date: 20160816
  Receipt Date: 20160816
  Transmission Date: 20161109
  Serious: No
  Sender: FDA-Public Use
  Company Number: US-ENDO PHARMACEUTICALS INC.-2016-003537

PATIENT
  Age: 56 Year
  Sex: Female
  Weight: 113.5 kg

DRUGS (1)
  1. SUMAVEL DOSEPRO [Suspect]
     Active Substance: SUMATRIPTAN SUCCINATE
     Indication: MIGRAINE
     Dosage: INJECT ON ONSET OF HEADACHE, MAY REPEAT IN 2 HOURS AS NEEDED
     Route: 065
     Dates: start: 201505

REACTIONS (5)
  - Injection site pain [Unknown]
  - Injection site haematoma [Recovered/Resolved]
  - Device malfunction [Recovered/Resolved]
  - Underdose [Recovered/Resolved]
  - Injection site bruising [Recovering/Resolving]

NARRATIVE: CASE EVENT DATE: 20160505
